FAERS Safety Report 4666045-1 (Version None)
Quarter: 2005Q2

REPORT INFORMATION
  Report Type: 
  Country: None (occurrence: None)
  Receive Date: 20050519
  Receipt Date: 20050222
  Transmission Date: 20051028
  Serious: Yes (Hospitalization)
  Sender: FDA-Public Use
  Company Number: JP-ROCHE-396570

PATIENT
  Age: 39 Year
  Sex: Male

DRUGS (6)
  1. VESANOID [Suspect]
     Route: 048
     Dates: start: 20020501, end: 20020611
  2. CYLOCIDE [Suspect]
     Indication: ACUTE PROMYELOCYTIC LEUKAEMIA
     Route: 042
     Dates: start: 20020607, end: 20020611
  3. CYLOCIDE [Suspect]
     Route: 042
     Dates: start: 20020714, end: 20020718
  4. CYLOCIDE [Suspect]
     Route: 042
     Dates: start: 20020815, end: 20020819
  5. DAUNOMYCIN [Suspect]
     Indication: ACUTE PROMYELOCYTIC LEUKAEMIA
     Route: 041
     Dates: start: 20020502, end: 20020504
  6. SUNRABIN [Suspect]
     Indication: ACUTE PROMYELOCYTIC LEUKAEMIA
     Route: 041
     Dates: start: 20020502, end: 20020506

REACTIONS (2)
  - MYELODYSPLASTIC SYNDROME [None]
  - PANCYTOPENIA [None]
